FAERS Safety Report 6105931-2 (Version None)
Quarter: 2009Q1

REPORT INFORMATION
  Report Type: 
  Country: None (occurrence: None)
  Receive Date: 20090306
  Receipt Date: 20080201
  Transmission Date: 20090719
  Serious: No
  Sender: FDA-Public Use
  Company Number: US-BRISTOL-MYERS SQUIBB COMPANY-14063739

PATIENT
  Sex: Female

DRUGS (1)
  1. TAXOL [Suspect]
     Indication: BREAST CANCER METASTATIC

REACTIONS (4)
  - ABSCESS LIMB [None]
  - NAIL BED BLEEDING [None]
  - NAIL DISORDER [None]
  - ONYCHALGIA [None]
